FAERS Safety Report 7137237-7 (Version None)
Quarter: 2010Q4

REPORT INFORMATION
  Report Type: 
  Country: None (occurrence: None)
  Receive Date: 20101119
  Receipt Date: 20101112
  Transmission Date: 20110411
  Serious: Yes (Hospitalization)
  Sender: FDA-Public Use
  Company Number: DSA_44199_2010

PATIENT
  Sex: Female

DRUGS (10)
  1. XENAZINE [Suspect]
     Indication: HUNTINGTON'S DISEASE
     Dosage: 25 MG BID ORAL
     Route: 048
     Dates: start: 20091215
  2. NOVOLOG [Concomitant]
  3. RISPERIDONE [Concomitant]
  4. FLORASTOR [Concomitant]
  5. SERTRALINE [Concomitant]
  6. CLONAZEPAM [Concomitant]
  7. SODIUM PHOSPHATES [Concomitant]
  8. MILK OF MAGNESIA [Concomitant]
  9. LORAZEPAM [Concomitant]
  10. BISACODYL [Concomitant]

REACTIONS (29)
  - ABNORMAL BEHAVIOUR [None]
  - ABNORMAL SLEEP-RELATED EVENT [None]
  - ACTIVITIES OF DAILY LIVING IMPAIRED [None]
  - AGGRESSION [None]
  - ANXIETY [None]
  - APATHY [None]
  - CHILLS [None]
  - CONDITION AGGRAVATED [None]
  - CONSTIPATION [None]
  - CONTUSION [None]
  - DEHYDRATION [None]
  - DELUSION [None]
  - DEPENDENT PERSONALITY DISORDER [None]
  - DEPRESSION [None]
  - FALL [None]
  - GAIT DISTURBANCE [None]
  - HALLUCINATION [None]
  - HUNTINGTON'S DISEASE [None]
  - HYPERHIDROSIS [None]
  - IRRITABILITY [None]
  - LIMB INJURY [None]
  - MALAISE [None]
  - MALNUTRITION [None]
  - PYREXIA [None]
  - RENAL FAILURE ACUTE [None]
  - RHABDOMYOLYSIS [None]
  - SUSPICIOUSNESS [None]
  - VISUAL IMPAIRMENT [None]
  - WEIGHT DECREASED [None]
